FAERS Safety Report 20163222 (Version 1)
Quarter: 2021Q4

REPORT INFORMATION
  Report Type: Spontaneous
  Country: ZA (occurrence: ZA)
  Receive Date: 20211209
  Receipt Date: 20211209
  Transmission Date: 20220304
  Serious: Yes (Other)
  Sender: FDA-Public Use
  Company Number: ZA-ORGANON-O2112ZAF000549

PATIENT
  Age: 50 Year
  Sex: Female

DRUGS (1)
  1. IMPLANON [Suspect]
     Active Substance: ETONOGESTREL
     Dosage: 1 IMPLANT
     Route: 059

REACTIONS (7)
  - Pregnancy with implant contraceptive [Unknown]
  - Weight decreased [Unknown]
  - Heavy menstrual bleeding [Unknown]
  - Illness [Unknown]
  - Pyrexia [Unknown]
  - Cough [Unknown]
  - Unintended pregnancy [Unknown]

NARRATIVE: CASE EVENT DATE: 20160101
